FAERS Safety Report 8504217 (Version 4)
Quarter: 2013Q1

REPORT INFORMATION
  Report Type: Report from Study
  Country: RO (occurrence: RO)
  Receive Date: 20120406
  Receipt Date: 20130208
  Transmission Date: 20140127
  Serious: Yes (Hospitalization)
  Sender: FDA-Public Use
  Company Number: RO-ROCHE-1052930

PATIENT
  Age: 27 Year
  Sex: Male

DRUGS (3)
  1. PEG-INTERFERON ALFA 2A [Suspect]
     Indication: HEPATITIS C
     Dosage: LAST DOSE PRIOR TO SAE:28/FEB/2012
     Route: 065
     Dates: start: 20110524
  2. TG4040 [Suspect]
     Indication: PRODUCT USED FOR UNKNOWN INDICATION
     Dosage: LAST DOSE PRIOR TO SAE:19/SEP/2011
     Route: 065
     Dates: start: 20110228
  3. RIBAVIRIN [Suspect]
     Indication: HEPATITIS C
     Dosage: LAST DOSE PRIOR TO SAE:04/MAR/2012
     Route: 065
     Dates: start: 20110524

REACTIONS (1)
  - Clinically isolated syndrome [Recovered/Resolved]
